FAERS Safety Report 7619731-5 (Version None)
Quarter: 2011Q3

REPORT INFORMATION
  Report Type: 
  Country: None (occurrence: None)
  Receive Date: 20110719
  Receipt Date: 20110707
  Transmission Date: 20111222
  Serious: Yes (Hospitalization, Other)
  Sender: FDA-Public Use
  Company Number: JP-SHIRE-ALL1-2011-02018

PATIENT
  Sex: Male

DRUGS (1)
  1. FOSRENOL [Suspect]
     Indication: HYPERPHOSPHATAEMIA
     Dosage: UNK UNK, UNKNOWN
     Route: 048

REACTIONS (5)
  - VOMITING [None]
  - APPENDICITIS [None]
  - LARGE INTESTINAL ULCER [None]
  - MEDICATION RESIDUE [None]
  - ABDOMINAL PAIN LOWER [None]
